FAERS Safety Report 25578421 (Version 5)
Quarter: 2025Q4

REPORT INFORMATION
  Report Type: Spontaneous
  Country: US (occurrence: US)
  Receive Date: 20250718
  Receipt Date: 20251128
  Transmission Date: 20260119
  Serious: Yes (Hospitalization, Other)
  Sender: MERCK SHARP & DOHME LLC
  Company Number: US-009507513-2309151

PATIENT
  Age: 4 Year
  Sex: Male
  Weight: 25.1 kg

DRUGS (5)
  1. TEMOZOLOMIDE [Suspect]
     Active Substance: TEMOZOLOMIDE
     Indication: Glioma
     Dosage: TIME INTERVAL: CYCLICAL: DOSAGE: 150 MG/M2
     Route: 048
     Dates: start: 20250106
  2. TEMOZOLOMIDE [Suspect]
     Active Substance: TEMOZOLOMIDE
     Indication: Glioma
     Dosage: TIME INTERVAL: CYCLICAL: DOSAGE: 200 MG/M2
     Route: 048
     Dates: start: 20250203, end: 20250625
  3. LEVETIRACETAM [Concomitant]
     Active Substance: LEVETIRACETAM
     Dates: start: 20241119
  4. DEXAMETHASONE [Concomitant]
     Active Substance: DEXAMETHASONE
     Dates: start: 20241128, end: 20250527
  5. ONDANSETRON [Concomitant]
     Active Substance: ONDANSETRON
     Dates: start: 20241108

REACTIONS (4)
  - Vomiting [Recovered/Resolved]
  - Optic glioma [Not Recovered/Not Resolved]
  - Headache [Recovered/Resolved]
  - Strabismus [Not Recovered/Not Resolved]

NARRATIVE: CASE EVENT DATE: 20250601
